FAERS Safety Report 6096421-4 (Version None)
Quarter: 2009Q1

REPORT INFORMATION
  Report Type: 
  Country: None (occurrence: None)
  Receive Date: 20090227
  Receipt Date: 20090127
  Transmission Date: 20090719
  Serious: No
  Sender: FDA-Public Use
  Company Number: A0760351A

PATIENT
  Age: 37 Year
  Sex: Male
  Weight: 63.6 kg

DRUGS (2)
  1. LAMOTRIGINE [Suspect]
     Dosage: 200MG UNKNOWN
     Route: 048
     Dates: start: 20070912
  2. SUBOXONE [Concomitant]
     Indication: PAIN
     Dosage: 4MG UNKNOWN
     Route: 048

REACTIONS (4)
  - DRUG INEFFECTIVE [None]
  - MALAISE [None]
  - TREMOR [None]
  - WITHDRAWAL SYNDROME [None]
